FAERS Safety Report 21678081 (Version 1)
Quarter: 2022Q4

REPORT INFORMATION
  Report Type: Spontaneous
  Country: FR (occurrence: FR)
  Receive Date: 20221203
  Receipt Date: 20221203
  Transmission Date: 20230112
  Serious: Yes (Other)
  Sender: FDA-Public Use
  Company Number: None

PATIENT
  Age: 56 Year
  Sex: Male
  Weight: 83 kg

DRUGS (18)
  1. TACROLIMUS [Suspect]
     Active Substance: TACROLIMUS
     Indication: Product used for unknown indication
  2. IG VENA [Suspect]
     Active Substance: HUMAN IMMUNOGLOBULIN G
     Indication: Myxoedema
     Dates: start: 20220803, end: 20220807
  3. AGOMELATINE [Concomitant]
     Active Substance: AGOMELATINE
  4. BACTRIM [Concomitant]
     Active Substance: SULFAMETHOXAZOLE\TRIMETHOPRIM
  5. CELLCEPT [Concomitant]
     Active Substance: MYCOPHENOLATE MOFETIL
  6. COUMADIN [Concomitant]
     Active Substance: WARFARIN SODIUM
  7. ERYTHROMYCIN [Concomitant]
     Active Substance: ERYTHROMYCIN
  8. GAVISCON [Concomitant]
     Active Substance: ALUMINUM HYDROXIDE\MAGNESIUM CARBONATE
  9. KETODERM [Concomitant]
  10. LEUCOVORIN CALCIUM [Concomitant]
     Active Substance: LEUCOVORIN CALCIUM
  11. LERCANIDIPINE [Concomitant]
     Active Substance: LERCANIDIPINE
  12. MOVICOL [Concomitant]
     Active Substance: POLYETHYLENE GLYCOL 3350\POTASSIUM CHLORIDE\SODIUM BICARBONATE\SODIUM CHLORIDE
  13. OMEPRAZOLE [Concomitant]
     Active Substance: OMEPRAZOLE
  14. PREDNISOLONE [Concomitant]
     Active Substance: PREDNISOLONE
  15. ROSUVASTATIN [Concomitant]
     Active Substance: ROSUVASTATIN
  16. Transilane [Concomitant]
  17. VITAMIN C [Concomitant]
     Active Substance: ASCORBIC ACID
  18. ZOLPIDEM [Concomitant]
     Active Substance: ZOLPIDEM TARTRATE

REACTIONS (4)
  - Dyspnoea [Recovered/Resolved]
  - Vomiting [Recovered/Resolved]
  - Hypersensitivity [Recovered/Resolved]
  - Hypoxia [Recovered/Resolved]

NARRATIVE: CASE EVENT DATE: 20220803
